FAERS Safety Report 6075658-4 (Version None)
Quarter: 2009Q1

REPORT INFORMATION
  Report Type: 
  Country: None (occurrence: None)
  Receive Date: 20090212
  Receipt Date: 20090131
  Transmission Date: 20090719
  Serious: Yes (Other)
  Sender: FDA-Public Use
  Company Number: CA-ROCHE-612381

PATIENT
  Age: 18 Year
  Sex: Male

DRUGS (1)
  1. ISOTRETINOIN [Suspect]
     Indication: ACNE
     Dosage: RECEIVED WHEN PATIENT WAS IN MID TEENAGE, RECEIVED SEVERAL COURSES AND LAST DOSE IN MID TWENTIES
     Route: 048
     Dates: start: 19870101

REACTIONS (3)
  - ERECTILE DYSFUNCTION [None]
  - GENITAL HYPOAESTHESIA [None]
  - LIBIDO DECREASED [None]
